FAERS Safety Report 18582314 (Version 1)
Quarter: 2020Q4

REPORT INFORMATION
  Report Type: Spontaneous
  Country: US (occurrence: US)
  Receive Date: 20201204
  Receipt Date: 20201204
  Transmission Date: 20210114
  Serious: No
  Sender: FDA-Public Use
  Company Number: None

PATIENT
  Sex: Male

DRUGS (6)
  1. ONE TOUCH [Concomitant]
     Active Substance: DEXTROSE
  2. OLM MED HCTZ TAB [Concomitant]
  3. ATOROVASTATIN [Concomitant]
  4. MICROLET [Concomitant]
  5. METOPROL SUC TAB [Concomitant]
  6. ENBREL [Suspect]
     Active Substance: ETANERCEPT
     Indication: SKIN DISORDER
     Dosage: ?          OTHER FREQUENCY:EVERY 7 DAYS;?
     Route: 058
     Dates: start: 20180628

REACTIONS (1)
  - Cerebrovascular accident [None]
